FAERS Safety Report 8995955 (Version 1)
Quarter: 2013Q1

REPORT INFORMATION
  Report Type: Spontaneous
  Country: US (occurrence: US)
  Receive Date: 20130103
  Receipt Date: 20130103
  Transmission Date: 20140127
  Serious: Yes (Other)
  Sender: FDA-Public Use
  Company Number: CHPA2012US025744

PATIENT
  Age: 69 Year
  Sex: Female

DRUGS (3)
  1. TRIAMINIC COLD AND ALLERGY [Suspect]
     Indication: NASOPHARYNGITIS
     Dosage: 4 TSP, 2 TO 4 TIMES A DAY
     Route: 048
  2. TRIAMINIC CHEST + NASAL CONGESTION [Suspect]
     Indication: LOWER RESPIRATORY TRACT INFECTION
     Dosage: UNK, UNK
  3. DRUG THERAPY NOS [Concomitant]
     Dosage: UNK, UNK

REACTIONS (7)
  - Diabetes mellitus [Not Recovered/Not Resolved]
  - Sneezing [Not Recovered/Not Resolved]
  - Throat irritation [Not Recovered/Not Resolved]
  - Lacrimation increased [Not Recovered/Not Resolved]
  - Discomfort [Not Recovered/Not Resolved]
  - Nasopharyngitis [Not Recovered/Not Resolved]
  - Dysphagia [Not Recovered/Not Resolved]
